FAERS Safety Report 7415913-6 (Version None)
Quarter: 2011Q2

REPORT INFORMATION
  Report Type: 
  Country: None (occurrence: None)
  Receive Date: 20110406
  Receipt Date: 20110322
  Transmission Date: 20111010
  Serious: Yes (Hospitalization)
  Sender: FDA-Public Use
  Company Number: 2011MA002743

PATIENT
  Age: 31 Year
  Sex: Male

DRUGS (1)
  1. HYDROCORTISONE CREAM USP, 2.5% (ALPHARMA) (HYDROCORTISONE) [Suspect]

REACTIONS (11)
  - CEREBRAL HAEMORRHAGE [None]
  - DIARRHOEA [None]
  - HYPOPROTEINAEMIA [None]
  - GENERALISED OEDEMA [None]
  - ASCITES [None]
  - CONVULSION [None]
  - CONFUSIONAL STATE [None]
  - APHASIA [None]
  - INTRACRANIAL VENOUS SINUS THROMBOSIS [None]
  - ELECTROLYTE IMBALANCE [None]
  - LEUKOPENIA [None]
